FAERS Safety Report 21318401 (Version 1)
Quarter: 2022Q3

REPORT INFORMATION
  Report Type: Spontaneous
  Country: DE (occurrence: DE)
  Receive Date: 20220911
  Receipt Date: 20220911
  Transmission Date: 20221027
  Serious: No
  Sender: FDA-Public Use
  Company Number: DE-SANOFI-01240304

PATIENT
  Sex: Male

DRUGS (1)
  1. DUPIXENT [Suspect]
     Active Substance: DUPILUMAB
     Indication: Nasal polyps

REACTIONS (6)
  - Injection site pain [Unknown]
  - Injection site discolouration [Unknown]
  - Pain [Unknown]
  - Fear of injection [Unknown]
  - Hyperhidrosis [Unknown]
  - Product use in unapproved indication [Unknown]
